FAERS Safety Report 13051092 (Version 2)
Quarter: 2017Q1

REPORT INFORMATION
  Report Type: Spontaneous
  Country: US (occurrence: US)
  Receive Date: 20161221
  Receipt Date: 20170228
  Transmission Date: 20170428
  Serious: No
  Sender: FDA-Public Use
  Company Number: US-PFIZER INC-2016586842

PATIENT
  Age: 41 Year
  Sex: Female

DRUGS (3)
  1. MORPHINE [Concomitant]
     Active Substance: MORPHINE
     Indication: PAIN
     Dosage: 15MG TABLET, TWO IN THE MORNING AND ONE AT NIGHT
  2. LYRICA [Suspect]
     Active Substance: PREGABALIN
     Indication: FIBROMYALGIA
  3. LYRICA [Suspect]
     Active Substance: PREGABALIN
     Indication: NEUROPATHY PERIPHERAL
     Dosage: 300 MG, 2X/DAY (150MG CAPSULES, TWO IN THE MORNING AND TWO AT NIGHT TIME)

REACTIONS (4)
  - Herpes zoster [Recovered/Resolved]
  - Rash [Recovered/Resolved]
  - Blister [Recovered/Resolved]
  - Scar [Unknown]

NARRATIVE: CASE EVENT DATE: 2016
